FAERS Safety Report 25729480 (Version 1)
Quarter: 2025Q3

REPORT INFORMATION
  Report Type: Spontaneous
  Country: ZA (occurrence: ZA)
  Receive Date: 20250827
  Receipt Date: 20250827
  Transmission Date: 20251020
  Serious: Yes (Other)
  Sender: ROCHE
  Company Number: ZA-ROCHE-10000366133

PATIENT

DRUGS (1)
  1. VABYSMO [Suspect]
     Active Substance: FARICIMAB-SVOA
     Indication: Hodgkin^s disease
     Route: 065

REACTIONS (2)
  - Eye inflammation [Unknown]
  - Blindness [Unknown]
